FAERS Safety Report 16800150 (Version 1)
Quarter: 2019Q3

REPORT INFORMATION
  Report Type: Spontaneous
  Country: US (occurrence: US)
  Receive Date: 20190912
  Receipt Date: 20190912
  Transmission Date: 20191005
  Serious: Yes (Hospitalization, Other)
  Sender: FDA-Public Use
  Company Number: US-VISTAPHARM, INC.-VER201909-000960

PATIENT
  Age: 53 Year
  Sex: Male

DRUGS (5)
  1. BENZODIAZEPINE [Concomitant]
     Active Substance: BENZODIAZEPINE
  2. METHAMPHETAMINE [Concomitant]
     Active Substance: METHAMPHETAMINE
  3. DEXTROSE. [Concomitant]
     Active Substance: DEXTROSE
     Indication: MENTAL STATUS CHANGES
     Route: 042
  4. METHADONE [Suspect]
     Active Substance: METHADONE HYDROCHLORIDE
     Dosage: 60MG DAILY
  5. METHADONE [Suspect]
     Active Substance: METHADONE HYDROCHLORIDE
     Indication: DRUG USE DISORDER
     Dosage: 100MG DAILY

REACTIONS (1)
  - Hypoglycaemia [Not Recovered/Not Resolved]
